FAERS Safety Report 21684692 (Version 1)
Quarter: 2022Q4

REPORT INFORMATION
  Report Type: Spontaneous
  Country: CA (occurrence: CA)
  Receive Date: 20221205
  Receipt Date: 20221205
  Transmission Date: 20230113
  Serious: Yes (Hospitalization, Other)
  Sender: FDA-Public Use
  Company Number: CA-JNJFOC-20221167229

PATIENT
  Age: 62 Year
  Sex: Male
  Weight: 117 kg

DRUGS (1)
  1. REMICADE [Suspect]
     Active Substance: INFLIXIMAB
     Indication: Colitis ulcerative
     Route: 041

REACTIONS (8)
  - Pulmonary thrombosis [Unknown]
  - Loss of consciousness [Unknown]
  - Weight decreased [Unknown]
  - Weight increased [Unknown]
  - Nephrolithiasis [Unknown]
  - Drug level above therapeutic [Unknown]
  - Off label use [Unknown]
  - Product dose omission issue [Unknown]
